FAERS Safety Report 23221281 (Version 1)
Quarter: 2023Q4

REPORT INFORMATION
  Report Type: Spontaneous
  Country: FR (occurrence: FR)
  Receive Date: 20231123
  Receipt Date: 20231123
  Transmission Date: 20240109
  Serious: Yes (Death)
  Sender: FDA-Public Use
  Company Number: FR-STRIDES ARCOLAB LIMITED-2023SP017286

PATIENT

DRUGS (5)
  1. DEXAMETHASONE [Suspect]
     Active Substance: DEXAMETHASONE
     Indication: Angiocentric lymphoma
     Dosage: 40 MILLIGRAM, CYCLICAL (ON DAY 1 TO DAY 4 )
     Route: 048
  2. METHOTREXATE [Suspect]
     Active Substance: METHOTREXATE
     Indication: Angiocentric lymphoma
     Dosage: 3000 MILLIGRAM/SQ. METER, CYCLICAL (ON 1 DAY)
     Route: 042
  3. GEMCITABINE [Suspect]
     Active Substance: GEMCITABINE
     Indication: Angiocentric lymphoma
     Dosage: 1000 MILLIGRAM/SQ. METER, CYCLICAL (ON DAY 1)
     Route: 042
  4. ASPARAGINASE [Suspect]
     Active Substance: ASPARAGINASE
     Indication: Angiocentric lymphoma
     Dosage: UNK, CYCLICAL (6000 UI/ME2; ON DAYS 2, 4, 6, 8, 10, 12, 14 AND 16 )
     Route: 042
  5. LEUCOVORIN [Concomitant]
     Active Substance: LEUCOVORIN\LEUCOVORIN CALCIUM
     Indication: Drug therapy
     Dosage: UNK
     Route: 065

REACTIONS (1)
  - Sepsis [Fatal]
